FAERS Safety Report 7081694-1 (Version None)
Quarter: 2010Q4

REPORT INFORMATION
  Report Type: 
  Country: None (occurrence: None)
  Receive Date: 20101103
  Receipt Date: 20101021
  Transmission Date: 20110411
  Serious: Yes (Death)
  Sender: FDA-Public Use
  Company Number: GB-AMGEN-US348998

PATIENT

DRUGS (7)
  1. ETANERCEPT [Suspect]
     Indication: RHEUMATOID ARTHRITIS
     Dosage: 25 MG, 2 TIMES/WK
     Route: 058
     Dates: start: 20051015
  2. METHOTREXATE [Concomitant]
     Dosage: UNK UNK, UNK
  3. METHOTREXATE [Concomitant]
     Dosage: UNKNOWN
     Dates: start: 20030306, end: 20070718
  4. METHOTREXATE [Concomitant]
     Dates: start: 20030306, end: 20070718
  5. CO-CODAMOL [Concomitant]
     Dosage: UNK UNK, UNK
  6. VOLTAREN [Concomitant]
     Dosage: UNKNOWN
  7. VOLTAREN [Concomitant]
     Dosage: UNKNOWN

REACTIONS (2)
  - BRONCHOPNEUMONIA [None]
  - LUNG NEOPLASM MALIGNANT [None]
